FAERS Safety Report 4377154-9 (Version None)
Quarter: 2004Q2

REPORT INFORMATION
  Report Type: 
  Country: None (occurrence: None)
  Receive Date: 20040614
  Receipt Date: 20040614
  Transmission Date: 20050107
  Serious: Yes (Other)
  Sender: FDA-Public Use
  Company Number: None

PATIENT
  Sex: Female

DRUGS (1)
  1. OMNICEF [Suspect]
     Indication: OTITIS MEDIA
     Dosage: 125 MG QD ORAL
     Route: 048
     Dates: start: 20040607, end: 20040617

REACTIONS (1)
  - FAECES DISCOLOURED [None]
